FAERS Safety Report 6503194-7 (Version None)
Quarter: 2009Q4

REPORT INFORMATION
  Report Type: 
  Country: None (occurrence: None)
  Receive Date: 20091217
  Receipt Date: 20091209
  Transmission Date: 20100525
  Serious: Yes (Other)
  Sender: FDA-Public Use
  Company Number: GB-PFIZER INC-2009308217

PATIENT
  Age: 71 Year
  Sex: Male

DRUGS (2)
  1. ISTIN [Suspect]
     Dosage: 10 MG, 1X/DAY
  2. CLOPIDOGREL [Concomitant]

REACTIONS (2)
  - MYOSITIS [None]
  - PAIN IN EXTREMITY [None]
